FAERS Safety Report 9198858 (Version 2)
Quarter: 2013Q2

REPORT INFORMATION
  Report Type: Spontaneous
  Country: JP (occurrence: JP)
  Receive Date: 20130329
  Receipt Date: 20130409
  Transmission Date: 20140414
  Serious: Yes (Hospitalization)
  Sender: FDA-Public Use
  Company Number: JP-009507513-1303JPN013210

PATIENT
  Age: 63 Year
  Sex: Male

DRUGS (8)
  1. BETAMETHASONE SODIUM PHOSPHATE [Suspect]
     Indication: CATARACT
     Dosage: UNK
     Route: 031
     Dates: start: 201004, end: 2010
  2. ECOLICIN [Suspect]
     Indication: CATARACT
     Dosage: UNK
     Route: 031
     Dates: start: 2010, end: 2010
  3. SANBETASON [Suspect]
     Indication: CATARACT
     Dosage: UNK
     Route: 031
     Dates: start: 2010, end: 2010
  4. NEO-MEDROL [Suspect]
     Indication: CATARACT
     Dosage: UNK
     Route: 031
     Dates: start: 2010, end: 2010
  5. RINBETA PF [Suspect]
     Indication: CATARACT
     Dosage: UNK
     Route: 031
     Dates: start: 2010, end: 2010
  6. DICLOD [Concomitant]
     Indication: CATARACT
     Dosage: UNK
     Route: 031
     Dates: start: 201004, end: 2010
  7. CRAVIT [Concomitant]
     Indication: CATARACT
     Dosage: UNK
     Route: 031
     Dates: start: 201004, end: 2010
  8. BESTRON [Concomitant]
     Indication: CATARACT
     Dosage: UNK
     Route: 031
     Dates: start: 2010, end: 2010

REACTIONS (1)
  - Dermatitis contact [Recovering/Resolving]
